FAERS Safety Report 5877631-5 (Version None)
Quarter: 2008Q3

REPORT INFORMATION
  Report Type: 
  Country: None (occurrence: None)
  Receive Date: 20080911
  Receipt Date: 20080905
  Transmission Date: 20090109
  Serious: Yes (Death, Hospitalization)
  Sender: FDA-Public Use
  Company Number: KR-BRISTOL-MYERS SQUIBB COMPANY-14205694

PATIENT
  Age: 67 Year
  Sex: Male

DRUGS (14)
  1. CETUXIMAB [Suspect]
     Indication: HEAD AND NECK CANCER
     Dosage: 400MG/M2 1 IN IN ONCE
     Route: 042
     Dates: start: 20080513
  2. CISPLATIN [Suspect]
     Indication: HEAD AND NECK CANCER
     Route: 042
     Dates: start: 20080513
  3. DOCETAXEL [Suspect]
     Indication: HEAD AND NECK CANCER
     Route: 042
     Dates: start: 20080513
  4. ACETYLSALICYLIC ACID SRT [Concomitant]
     Route: 048
     Dates: start: 20070305
  5. ISOSORBIDE DINITRATE [Concomitant]
     Route: 048
     Dates: start: 20070331
  6. CARVEDILOL [Concomitant]
     Route: 048
     Dates: start: 20070309
  7. DILTIAZEM HCL [Concomitant]
     Route: 048
     Dates: start: 20080428
  8. LEVODROPROPIZINE [Concomitant]
     Route: 048
     Dates: start: 20080429
  9. ACETAMINOPHEN [Concomitant]
     Route: 048
     Dates: start: 20080515
  10. METOCLOPRAMIDE HCL [Concomitant]
     Route: 042
     Dates: start: 20080517
  11. DEXAMETHASONE [Concomitant]
     Route: 042
     Dates: start: 20080518
  12. FLUCONAZOLE [Concomitant]
     Route: 048
     Dates: start: 20080519
  13. AMINO ACIDS W/DEXTROSE [Concomitant]
     Route: 042
     Dates: start: 20080518
  14. LIPIDS [Concomitant]

REACTIONS (3)
  - ASTHENIA [None]
  - DYSPNOEA [None]
  - RESPIRATORY ARREST [None]
